FAERS Safety Report 6011705-3 (Version None)
Quarter: 2008Q4

REPORT INFORMATION
  Report Type: 
  Country: None (occurrence: None)
  Receive Date: 20081218
  Receipt Date: 19910308
  Transmission Date: 20090506
  Serious: Yes (Death, Hospitalization)
  Sender: FDA-Public Use
  Company Number: AT-ROCHE-910250002001

PATIENT

DRUGS (1)
  1. FLUMAZENIL [Suspect]
     Dosage: DOSING FREQUENCY REPORTED AS ONE DOSE.
     Route: 042

REACTIONS (1)
  - DISEASE PROGRESSION [None]
